FAERS Safety Report 18108593 (Version 1)
Quarter: 2020Q3

REPORT INFORMATION
  Report Type: Spontaneous
  Country: CA (occurrence: CA)
  Receive Date: 20200804
  Receipt Date: 20200804
  Transmission Date: 20201103
  Serious: Yes (Hospitalization)
  Sender: FDA-Public Use
  Company Number: CA-APOTEX-2020AP014864

PATIENT
  Age: 44 Year
  Sex: Male

DRUGS (15)
  1. TEMAZEPAM. [Suspect]
     Active Substance: TEMAZEPAM
     Indication: NEURALGIA
     Dosage: UNK
     Route: 065
  2. KETAMINE [Suspect]
     Active Substance: KETAMINE
     Dosage: 0.5 MILLIGRAM/KILOGRAM, Q.H.
     Route: 042
  3. ONDANSETRON [Concomitant]
     Active Substance: ONDANSETRON
     Indication: PROPHYLAXIS
     Dosage: UNK, QD
     Route: 042
  4. AMITRIPTYLINE [Suspect]
     Active Substance: AMITRIPTYLINE
     Indication: NEURALGIA
     Dosage: UNK
     Route: 065
  5. CANNABIDIOL [Suspect]
     Active Substance: CANNABIDIOL
     Indication: NEURALGIA
     Dosage: UNK (VAPOURIZED)
     Route: 065
  6. DELTA(9)?TETRAHYDROCANNABINOLIC ACID [Suspect]
     Active Substance: DELTA(9)-TETRAHYDROCANNABINOLIC ACID
     Indication: NEURALGIA
     Dosage: 0.3 GRAM, Q.WK.
     Route: 065
  7. KETAMINE [Suspect]
     Active Substance: KETAMINE
     Indication: NEURALGIA
     Dosage: 0.5 MILLIGRAM/KILOGRAM
     Route: 042
  8. KETAMINE [Suspect]
     Active Substance: KETAMINE
     Dosage: 1.6 MILLIGRAM/KILOGRAM, Q.H. (TITRATED TO A MAXIMUM )
     Route: 042
  9. MAGNESIUM SULFATE. [Concomitant]
     Active Substance: MAGNESIUM SULFATE
     Indication: ANALGESIC THERAPY
     Dosage: 50 MILLIGRAM/KILOGRAM
     Route: 040
  10. MAGNESIUM SULFATE. [Concomitant]
     Active Substance: MAGNESIUM SULFATE
     Dosage: 15 MILLIGRAM/KILOGRAM, Q.H.
     Route: 042
  11. DULOXETINE. [Suspect]
     Active Substance: DULOXETINE
     Indication: NEURALGIA
     Dosage: UNK
     Route: 065
  12. ZOPICLONE [Suspect]
     Active Substance: ZOPICLONE
     Indication: NEURALGIA
     Dosage: UNK
     Route: 065
  13. DEXAMETHASONE. [Concomitant]
     Active Substance: DEXAMETHASONE
     Indication: PROPHYLAXIS
     Dosage: UNK, QD
     Route: 042
  14. MIDAZOLAM. [Suspect]
     Active Substance: MIDAZOLAM
     Indication: PROPHYLAXIS
     Dosage: UNK, QD
     Route: 042
  15. LIDOCAINE. [Concomitant]
     Active Substance: LIDOCAINE
     Indication: ANALGESIC THERAPY
     Dosage: 5 MILLIGRAM/KILOGRAM
     Route: 065

REACTIONS (8)
  - Disinhibition [Recovered/Resolved]
  - Restlessness [Recovered/Resolved]
  - Aggression [Recovered/Resolved]
  - Behaviour disorder [Recovered/Resolved]
  - Agitation [Recovered/Resolved]
  - Confusional state [Recovered/Resolved]
  - Psychotic disorder [Recovered/Resolved]
  - Hypersexuality [Recovered/Resolved]
